FAERS Safety Report 18966848 (Version 1)
Quarter: 2021Q1

REPORT INFORMATION
  Report Type: Spontaneous
  Country: US (occurrence: US)
  Receive Date: 20210304
  Receipt Date: 20210304
  Transmission Date: 20210420
  Serious: No
  Sender: FDA-Public Use
  Company Number: US-AUROBINDO-AUR-APL-2020-011139

PATIENT
  Age: 67 Year
  Sex: Female

DRUGS (1)
  1. LEVETIRACETAM TABLETS 500 MG [Suspect]
     Active Substance: LEVETIRACETAM
     Indication: EPILEPSY
     Dosage: TWO TABLETS PER DAY ONE IN THE MORNING AND ONE IN THE EVENING
     Route: 065

REACTIONS (2)
  - Rectal tenesmus [Not Recovered/Not Resolved]
  - Abdominal discomfort [Not Recovered/Not Resolved]

NARRATIVE: CASE EVENT DATE: 20200224
